FAERS Safety Report 4797131-3 (Version None)
Quarter: 2005Q4

REPORT INFORMATION
  Report Type: 
  Country: None (occurrence: None)
  Receive Date: 20051013
  Receipt Date: 20020730
  Transmission Date: 20060501
  Serious: Yes (Death, Hospitalization)
  Sender: FDA-Public Use
  Company Number: US-MERCK-0208USA01602

PATIENT
  Sex: Female

DRUGS (1)
  1. VIOXX [Suspect]
     Indication: INFLAMMATION
     Route: 048
     Dates: start: 20030101

REACTIONS (6)
  - DYSPNOEA [None]
  - HAEMORRHAGE [None]
  - MULTI-ORGAN FAILURE [None]
  - PERIPHERAL EMBOLISM [None]
  - PULMONARY EMBOLISM [None]
  - SHOCK [None]
